FAERS Safety Report 8403627 (Version 2)
Quarter: 2013Q4

REPORT INFORMATION
  Report Type: Spontaneous
  Country: CA (occurrence: CA)
  Receive Date: 20120213
  Receipt Date: 20131121
  Transmission Date: 20140711
  Serious: Yes (Disabling)
  Sender: FDA-Public Use
  Company Number: CA-ROCHE-1036694

PATIENT
  Age: 73 Year
  Sex: Female
  Weight: 62 kg

DRUGS (6)
  1. AVASTIN [Suspect]
     Indication: COLON CANCER METASTATIC
     Route: 042
     Dates: start: 20110725, end: 20110906
  2. CAMPTOSAR [Suspect]
     Indication: COLON CANCER METASTATIC
     Route: 042
     Dates: start: 20110725, end: 20110906
  3. CAMPTOSAR [Suspect]
     Dosage: DURATION: 2 MONTHS
     Route: 042
  4. 5-FU [Suspect]
     Indication: COLON CANCER METASTATIC
     Route: 041
     Dates: start: 20110725, end: 20110906
  5. 5-FU [Suspect]
     Route: 040
  6. 5-FU [Suspect]
     Route: 040

REACTIONS (1)
  - Pulmonary toxicity [Recovered/Resolved]
